FAERS Safety Report 8523001-0 (Version None)
Quarter: 2012Q3

REPORT INFORMATION
  Report Type: 
  Country: None (occurrence: None)
  Receive Date: 20120720
  Receipt Date: 20120710
  Transmission Date: 20120928
  Serious: Yes (Life-Threatening, Other)
  Sender: FDA-Public Use
  Company Number: CN-GE HEALTHCARE MEDICAL DIAGNOSTICS-OMPQ-NO-1207S-0764

PATIENT
  Age: 54 Year
  Sex: Male
  Weight: 40 kg

DRUGS (1)
  1. OMNIPAQUE 140 [Suspect]
     Indication: JAUNDICE CHOLESTATIC
     Route: 042
     Dates: start: 20120706, end: 20120706

REACTIONS (5)
  - INCONTINENCE [None]
  - COMA [None]
  - HEART RATE DECREASED [None]
  - BLOOD PRESSURE DECREASED [None]
  - ANAPHYLACTIC REACTION [None]
